FAERS Safety Report 9980893 (Version 1)
Quarter: 2014Q1

REPORT INFORMATION
  Report Type: Spontaneous
  Country: US (occurrence: US)
  Receive Date: 20140307
  Receipt Date: 20140307
  Transmission Date: 20141002
  Serious: No
  Sender: FDA-Public Use
  Company Number: US-US-EMD SERONO, INC.-7272647

PATIENT
  Sex: Female

DRUGS (6)
  1. REBIF [Suspect]
     Indication: PRODUCT USED FOR UNKNOWN INDICATION
     Route: 058
     Dates: start: 201205
  2. FIBERCON                           /00567702/ [Concomitant]
     Indication: PRODUCT USED FOR UNKNOWN INDICATION
  3. CALCIUM D-500 [Concomitant]
     Indication: PRODUCT USED FOR UNKNOWN INDICATION
  4. GOLDEN SEAL [Concomitant]
     Indication: PRODUCT USED FOR UNKNOWN INDICATION
  5. ESTER-C                            /00968001/ [Concomitant]
     Indication: PRODUCT USED FOR UNKNOWN INDICATION
  6. ECHINACEA PURPUREA [Concomitant]
     Indication: PRODUCT USED FOR UNKNOWN INDICATION

REACTIONS (3)
  - Joint swelling [Not Recovered/Not Resolved]
  - Arthralgia [Not Recovered/Not Resolved]
  - Influenza like illness [Not Recovered/Not Resolved]
